FAERS Safety Report 11182901 (Version 1)
Quarter: 2015Q2

REPORT INFORMATION
  Report Type: Spontaneous
  Country: US (occurrence: US)
  Receive Date: 20150611
  Receipt Date: 20150611
  Transmission Date: 20150821
  Serious: Yes (Other)
  Sender: FDA-Public Use
  Company Number: US-ASTRAZENECA-2015SE55250

PATIENT
  Age: 673 Month
  Sex: Female
  Weight: 52.2 kg

DRUGS (7)
  1. ARIMIDEX [Suspect]
     Active Substance: ANASTROZOLE
     Indication: BREAST CANCER
     Route: 048
     Dates: start: 20140722
  2. TAMOXIFEN [Suspect]
     Active Substance: TAMOXIFEN
     Indication: BREAST CANCER
     Route: 048
     Dates: start: 201412
  3. AROMASIN [Suspect]
     Active Substance: EXEMESTANE
     Indication: BREAST CANCER
     Route: 048
     Dates: start: 201502, end: 201503
  4. CHEMOTHERAPY [Suspect]
     Active Substance: UNSPECIFIED INGREDIENT
     Indication: BREAST CANCER
     Route: 065
     Dates: start: 20140903, end: 20150211
  5. ARIMIDEX [Suspect]
     Active Substance: ANASTROZOLE
     Indication: BREAST CANCER
     Route: 048
     Dates: start: 201503
  6. HUMIRA (GENERIC) [Suspect]
     Active Substance: ADALIMUMAB
     Indication: ARTHRALGIA
     Route: 065
  7. EFFEXOR ER (GENERIC) [Concomitant]
     Indication: DEPRESSION
     Route: 048

REACTIONS (14)
  - Hyperhidrosis [Unknown]
  - Arthralgia [Unknown]
  - Vaginal haemorrhage [Unknown]
  - Oropharyngeal pain [Unknown]
  - Vulvovaginal pruritus [Unknown]
  - Rash [Unknown]
  - Vaginal discharge [Unknown]
  - Pruritus generalised [Unknown]
  - Stoma site pain [Not Recovered/Not Resolved]
  - Skin burning sensation [Not Recovered/Not Resolved]
  - Hot flush [Unknown]
  - Cognitive disorder [Not Recovered/Not Resolved]
  - Drug hypersensitivity [Unknown]
  - Urticaria [Recovered/Resolved]

NARRATIVE: CASE EVENT DATE: 201503
